FAERS Safety Report 9262730 (Version 1)
Quarter: 2013Q2

REPORT INFORMATION
  Report Type: Spontaneous
  Country: IT (occurrence: None)
  Receive Date: 20130426
  Receipt Date: 20130426
  Transmission Date: 20140414
  Serious: Yes (Other)
  Sender: FDA-Public Use
  Company Number: GER/ITL/13/0029097

PATIENT
  Age: 78 Year
  Sex: Female

DRUGS (7)
  1. LEVOFLOXACIN (LEVOFLOXACIN HEMIHYDRATE) [Suspect]
     Indication: BACTERIAL INFECTION
     Dosage: 1 D
     Route: 048
     Dates: start: 20130227, end: 20130303
  2. REPAGLINIDE (REPAGLINIDE) [Suspect]
     Indication: TYPE 2 DIABETES MELLITUS
     Dosage: 1 D
     Route: 048
     Dates: start: 20030101, end: 20130303
  3. PANTOPRAZOLE SODIUM [Concomitant]
  4. PLAVIX (CLOPIDOGREL BISULFATE) [Concomitant]
  5. CITALOPRAM HYDROBROMIDE (CITALOPRAM HYDROBROMIDE) [Concomitant]
  6. METFORMIN HYDROCHLORIDE (METFORMIN HYDROCHLORIDE) [Concomitant]
  7. LASIX (FUROSEMIDE) [Concomitant]

REACTIONS (2)
  - Hypoglycaemic coma [None]
  - Drug interaction [None]
